FAERS Safety Report 8503189-8 (Version None)
Quarter: 2012Q3

REPORT INFORMATION
  Report Type: 
  Country: None (occurrence: None)
  Receive Date: 20120711
  Receipt Date: 20120706
  Transmission Date: 20120928
  Serious: Yes (Other)
  Sender: FDA-Public Use
  Company Number: US-PFIZER INC-2012162647

PATIENT
  Sex: Male
  Weight: 99.773 kg

DRUGS (2)
  1. RITALIN [Concomitant]
     Dosage: 20 MG, 3X/DAY
     Route: 048
  2. NEURONTIN [Suspect]
     Indication: AFFECTIVE DISORDER
     Dosage: 800 MG, 3X/DAY
     Route: 048

REACTIONS (2)
  - ACCIDENT [None]
  - LIMB INJURY [None]
